FAERS Safety Report 9162751 (Version 2)
Quarter: 2013Q1

REPORT INFORMATION
  Report Type: Spontaneous
  Country: US (occurrence: None)
  Receive Date: 20130207
  Receipt Date: 20130227
  Transmission Date: 20140127
  Serious: Yes (Other)
  Sender: FDA-Public Use
  Company Number: USA/USA/13/0027762

PATIENT
  Sex: Male

DRUGS (2)
  1. CITALOPRAM [Suspect]
     Indication: DEPRESSION
  2. AUGMENTIN [Suspect]
     Indication: SINUSITIS
     Dates: start: 20121224

REACTIONS (3)
  - Sinusitis [None]
  - Depression [None]
  - Condition aggravated [None]
